FAERS Safety Report 12638574 (Version 2)
Quarter: 2017Q2

REPORT INFORMATION
  Report Type: Spontaneous
  Country: US (occurrence: US)
  Receive Date: 20160809
  Receipt Date: 20170605
  Transmission Date: 20170830
  Serious: Yes (Life-Threatening, Other)
  Sender: FDA-Public Use
  Company Number: US-PFIZER INC-2016377833

PATIENT
  Sex: Female

DRUGS (5)
  1. EPOPROSTENOL. [Concomitant]
     Active Substance: EPOPROSTENOL
     Indication: PULMONARY ARTERIAL HYPERTENSION
     Dosage: UNK
  2. MILRINONE [Concomitant]
     Active Substance: MILRINONE
     Dosage: UNK
  3. VASOPRESSIN. [Concomitant]
     Active Substance: VASOPRESSIN
     Indication: HYPOTENSION
     Dosage: UNK
     Route: 042
  4. SILDENAFIL CITRATE. [Suspect]
     Active Substance: SILDENAFIL CITRATE
     Indication: PULMONARY ARTERIAL HYPERTENSION
     Dosage: UNK
     Route: 042
  5. NITRIC OXIDE. [Concomitant]
     Active Substance: NITRIC OXIDE
     Indication: PULMONARY ARTERIAL HYPERTENSION
     Dosage: 40 PARTS PER MILLION

REACTIONS (3)
  - Product use issue [Unknown]
  - Hypotension [Recovering/Resolving]
  - Ventilation perfusion mismatch [Recovering/Resolving]
